FAERS Safety Report 12158484 (Version 1)
Quarter: 2016Q1

REPORT INFORMATION
  Report Type: Spontaneous
  Country: US (occurrence: None)
  Receive Date: 20160307
  Receipt Date: 20160307
  Transmission Date: 20160526
  Serious: No
  Sender: FDA-Public Use
  Company Number: None

PATIENT
  Age: 64 Year
  Sex: Male
  Weight: 90.72 kg

DRUGS (5)
  1. MULTI-MINERAL [Concomitant]
  2. DHEA [Concomitant]
     Active Substance: PRASTERONE
  3. MULTI-VITAMIN [Concomitant]
     Active Substance: .ALPHA.-TOCOPHEROL ACETATE, DL-\ASCORBIC ACID\CYANOCOBALAMIN\FLUORIDE ION\FOLIC ACID\NIACIN\PYRIDOXINE\RIBOFLAVIN\THIAMINE\VITAMIN A\VITAMIN D
  4. TESTOSTERONE SUPPLEMENATION [Concomitant]
  5. AMBIEN [Suspect]
     Active Substance: ZOLPIDEM TARTRATE
     Indication: INITIAL INSOMNIA
     Dosage: 1 PILL ONCE DAILY ORAL
     Route: 048
     Dates: start: 20150301, end: 20160301

REACTIONS (4)
  - Hyperaesthesia [None]
  - Pruritus [None]
  - Rash [None]
  - Temperature regulation disorder [None]
